FAERS Safety Report 9817729 (Version 1)
Quarter: 2014Q1

REPORT INFORMATION
  Report Type: Spontaneous
  Country: US (occurrence: None)
  Receive Date: 20140110
  Receipt Date: 20140110
  Transmission Date: 20141002
  Serious: Yes (Hospitalization)
  Sender: FDA-Public Use
  Company Number: None

PATIENT
  Age: 81 Year
  Sex: Male
  Weight: 74 kg

DRUGS (2)
  1. CARBOPLATIN [Suspect]
     Dates: end: 20131217
  2. PACLITAXEL (TAXOL) [Suspect]
     Dates: end: 20131217

REACTIONS (5)
  - Nausea [None]
  - Vomiting [None]
  - Fatigue [None]
  - Decreased appetite [None]
  - Blood glucose abnormal [None]
